FAERS Safety Report 11122306 (Version 1)
Quarter: 2015Q2

REPORT INFORMATION
  Report Type: Spontaneous
  Country: US (occurrence: None)
  Receive Date: 20150518
  Receipt Date: 20150518
  Transmission Date: 20150821
  Serious: Yes (Life-Threatening)
  Sender: FDA-Public Use
  Company Number: None

PATIENT
  Age: 78 Year
  Sex: Male
  Weight: 81.6 kg

DRUGS (1)
  1. HEPARIN [Suspect]
     Active Substance: HEPARIN SODIUM
     Route: 058
     Dates: start: 20150218, end: 20150220

REACTIONS (4)
  - Deep vein thrombosis [None]
  - Platelet factor 4 increased [None]
  - Heparin-induced thrombocytopenia [None]
  - Thrombocytopenia [None]

NARRATIVE: CASE EVENT DATE: 20150220
